FAERS Safety Report 5087593-9 (Version None)
Quarter: 2006Q3

REPORT INFORMATION
  Report Type: 
  Country: None (occurrence: None)
  Receive Date: 20060821
  Receipt Date: 20060810
  Transmission Date: 20061208
  Serious: Yes (Life-Threatening, Other)
  Sender: FDA-Public Use
  Company Number: 2006097672

PATIENT
  Age: 57 Year
  Sex: Female
  Weight: 61.2356 kg

DRUGS (4)
  1. ZOLOFT [Suspect]
     Indication: ANXIETY
     Dosage: 50 MG (50 MG, 1 IN 1D), ORAL
     Route: 048
     Dates: start: 20060201, end: 20060601
  2. NEXIUM [Concomitant]
  3. ZYRTEC [Concomitant]
  4. LIPITOR [Concomitant]

REACTIONS (2)
  - ROAD TRAFFIC ACCIDENT [None]
  - TREMOR [None]
